FAERS Safety Report 17058109 (Version 1)
Quarter: 2019Q4

REPORT INFORMATION
  Report Type: Spontaneous
  Country: GB (occurrence: GB)
  Receive Date: 20191121
  Receipt Date: 20191121
  Transmission Date: 20200122
  Serious: Yes (Life-Threatening, Hospitalization, Disabling, Other)
  Sender: FDA-Public Use
  Company Number: GB-ABBVIE-19P-167-3010187-00

PATIENT
  Age: 40 Year
  Sex: Female
  Weight: 82.55 kg

DRUGS (1)
  1. PROSTAP SR [Suspect]
     Active Substance: LEUPROLIDE ACETATE
     Indication: PRODUCT USED FOR UNKNOWN INDICATION
     Route: 065

REACTIONS (1)
  - Generalised tonic-clonic seizure [Recovered/Resolved]

NARRATIVE: CASE EVENT DATE: 20191027
